FAERS Safety Report 6968984-5 (Version None)
Quarter: 2010Q3

REPORT INFORMATION
  Report Type: 
  Country: None (occurrence: None)
  Receive Date: 20100907
  Receipt Date: 20100824
  Transmission Date: 20110219
  Serious: Yes (Death)
  Sender: FDA-Public Use
  Company Number: GXKR2010GB09443

PATIENT
  Age: 60 Year
  Sex: Female

DRUGS (12)
  1. OXALIPLATIN [Suspect]
     Indication: COLORECTAL CANCER
     Dosage: UNK
     Route: 041
     Dates: start: 20091016, end: 20091016
  2. OXALIPLATIN [Suspect]
     Dosage: UNK
     Route: 041
     Dates: start: 20090821, end: 20090821
  3. CAPECITABINE [Concomitant]
     Indication: COLORECTAL CANCER
     Dosage: UNK
     Route: 048
     Dates: start: 20091016
  4. CAPECITABINE [Concomitant]
     Dosage: UNK
     Dates: start: 20090821
  5. ADCAL [Concomitant]
  6. ALENDRONATE SODIUM [Concomitant]
  7. AMLODIPINE [Concomitant]
     Dosage: UNK
     Dates: end: 20091027
  8. AMOXICILLIN [Concomitant]
     Dosage: UNK
     Dates: start: 20090926, end: 20091001
  9. ASPIRINE [Concomitant]
  10. SIMVASTATIN [Concomitant]
  11. DRUG THERAPY NOS [Concomitant]
     Indication: THROMBOSIS PROPHYLAXIS
     Dosage: UNK
     Dates: start: 20091016, end: 20091019
  12. DRUG THERAPY NOS [Concomitant]
     Dosage: UNK
     Dates: start: 20090822, end: 20090929

REACTIONS (4)
  - DYSPNOEA [None]
  - FEMORAL ARTERY EMBOLISM [None]
  - PERIPHERAL ISCHAEMIA [None]
  - UROSEPSIS [None]
